FAERS Safety Report 9580483 (Version 1)
Quarter: 2013Q4

REPORT INFORMATION
  Report Type: Spontaneous
  Country: ES (occurrence: ES)
  Receive Date: 20131002
  Receipt Date: 20131002
  Transmission Date: 20140711
  Serious: Yes (Hospitalization)
  Sender: FDA-Public Use
  Company Number: ES-JNJFOC-20130917370

PATIENT
  Age: 54 Year
  Sex: Male
  Weight: 77.5 kg

DRUGS (8)
  1. INCIVO [Suspect]
     Indication: HEPATITIS C
     Route: 065
  2. INTELENCE [Suspect]
     Indication: ANTIRETROVIRAL THERAPY
     Dosage: 1-0-1
     Route: 065
  3. PEGASYS [Suspect]
     Indication: HEPATITIS C
     Dosage: 180: 1 VIAL
     Route: 058
  4. COPEGUS [Suspect]
     Indication: HEPATITIS C
     Dosage: 3 TABLETS WITH BREAKFAST AND 2 WITH DINNER
     Route: 065
  5. TRUVADA [Suspect]
     Indication: ANTIRETROVIRAL THERAPY
     Dosage: 1-0-0
     Route: 065
  6. ISENTRESS [Suspect]
     Indication: ANTIRETROVIRAL THERAPY
     Dosage: 1-0-1
     Route: 065
  7. TENOFOVIR [Suspect]
     Indication: ANTIRETROVIRAL THERAPY
     Route: 065
  8. ALDACTONE [Suspect]
     Indication: PRODUCT USED FOR UNKNOWN INDICATION
     Route: 065

REACTIONS (14)
  - Ascites [Not Recovered/Not Resolved]
  - Staphylococcal sepsis [Recovered/Resolved]
  - Anaemia [Recovered/Resolved]
  - Thrombocytopenia [Recovered/Resolved]
  - Varices oesophageal [Recovered/Resolved]
  - Inguinal hernia [Not Recovered/Not Resolved]
  - Glomerular filtration rate abnormal [Recovered/Resolved]
  - Renal failure acute [Recovered/Resolved]
  - Urinary tract infection [Recovered/Resolved]
  - Leukocytosis [Recovered/Resolved]
  - Endocarditis [Recovered/Resolved]
  - Hepatic encephalopathy [Recovered/Resolved]
  - Hepatorenal syndrome [Recovered/Resolved]
  - Off label use [Unknown]
